FAERS Safety Report 16796581 (Version 1)
Quarter: 2019Q3

REPORT INFORMATION
  Report Type: Spontaneous
  Country: US (occurrence: US)
  Receive Date: 20190911
  Receipt Date: 20190911
  Transmission Date: 20191005
  Serious: No
  Sender: FDA-Public Use
  Company Number: US-ARRAY-2019-06292

PATIENT

DRUGS (2)
  1. MEKTOVI [Suspect]
     Active Substance: BINIMETINIB
     Indication: GASTROINTESTINAL STROMAL TUMOUR
     Dosage: 45 MG, BID
     Route: 048
     Dates: start: 20190711
  2. BRAFTOVI [Suspect]
     Active Substance: ENCORAFENIB
     Indication: GASTROINTESTINAL STROMAL TUMOUR
     Dosage: 450 MG, QD
     Route: 048
     Dates: start: 20190711

REACTIONS (4)
  - Flatulence [Not Recovered/Not Resolved]
  - Product use in unapproved indication [Unknown]
  - Diarrhoea [Recovering/Resolving]
  - Acrochordon [Unknown]
